FAERS Safety Report 4841014-7 (Version None)
Quarter: 2005Q4

REPORT INFORMATION
  Report Type: 
  Country: None (occurrence: None)
  Receive Date: 20051130
  Receipt Date: 20050825
  Transmission Date: 20060501
  Serious: No
  Sender: FDA-Public Use
  Company Number: US-BRISTOL-MYERS SQUIBB COMPANY-13090071

PATIENT
  Age: 7 Year
  Sex: Female
  Weight: 31 kg

DRUGS (3)
  1. ABILIFY [Suspect]
     Indication: AFFECTIVE DISORDER
     Route: 048
     Dates: start: 20050501
  2. METHYLIN [Concomitant]
  3. CLONIDINE [Concomitant]

REACTIONS (1)
  - WEIGHT INCREASED [None]
